FAERS Safety Report 4279336-3 (Version None)
Quarter: 2004Q1

REPORT INFORMATION
  Report Type: 
  Country: None (occurrence: None)
  Receive Date: 20040122
  Receipt Date: 20040112
  Transmission Date: 20041129
  Serious: Yes (Hospitalization, Other)
  Sender: FDA-Public Use
  Company Number: FR-JNJFOC-20030905591

PATIENT
  Age: 31 Year
  Sex: Female

DRUGS (2)
  1. REMICADE [Suspect]
     Indication: CROHN'S DISEASE
     Dosage: 250 MG, INTRAVENOUS
     Route: 042
     Dates: start: 20030710, end: 20030911
  2. AZATHIOPRINE [Concomitant]

REACTIONS (2)
  - COAGULATION FACTOR V LEVEL DECREASED [None]
  - PROTHROMBIN LEVEL DECREASED [None]
